FAERS Safety Report 18552382 (Version 1)
Quarter: 2020Q4

REPORT INFORMATION
  Report Type: Spontaneous
  Country: GB (occurrence: GB)
  Receive Date: 20201127
  Receipt Date: 20201127
  Transmission Date: 20210114
  Serious: Yes (Other)
  Sender: FDA-Public Use
  Company Number: GB-JNJFOC-20201134056

PATIENT
  Sex: Male
  Weight: 114 kg

DRUGS (7)
  1. TREVICTA [Suspect]
     Active Substance: PALIPERIDONE PALMITATE
     Indication: SCHIZOPHRENIA
     Route: 030
     Dates: start: 20200727
  2. TRIHEXYPHENIDYL [Concomitant]
     Active Substance: TRIHEXYPHENIDYL
  3. OMEPRAZOLE SODIUM [Concomitant]
     Active Substance: OMEPRAZOLE SODIUM
  4. SODIUM VALPROATE [Concomitant]
     Active Substance: VALPROATE SODIUM
  5. SIMVASTATIN. [Concomitant]
     Active Substance: SIMVASTATIN
  6. TREVICTA [Suspect]
     Active Substance: PALIPERIDONE PALMITATE
  7. TREVICTA [Suspect]
     Active Substance: PALIPERIDONE PALMITATE

REACTIONS (4)
  - Deep vein thrombosis [Recovered/Resolved with Sequelae]
  - Type 2 diabetes mellitus [Unknown]
  - Peripheral swelling [Unknown]
  - Pulmonary embolism [Unknown]

NARRATIVE: CASE EVENT DATE: 20201027
